FAERS Safety Report 10230123 (Version 2)
Quarter: 2014Q3

REPORT INFORMATION
  Report Type: Spontaneous
  Country: US (occurrence: US)
  Receive Date: 20140611
  Receipt Date: 20140806
  Transmission Date: 20150326
  Serious: Yes (Hospitalization, Other)
  Sender: FDA-Public Use
  Company Number: US-PFIZER INC-2014157067

PATIENT
  Age: 50 Year
  Sex: Male
  Weight: 72.56 kg

DRUGS (1)
  1. CHANTIX [Suspect]
     Active Substance: VARENICLINE TARTRATE
     Indication: SMOKING CESSATION THERAPY
     Dosage: 1 MG, 2X/DAY
     Route: 048
     Dates: start: 20140205, end: 20140225

REACTIONS (5)
  - Mood altered [Recovering/Resolving]
  - Hypomania [Recovering/Resolving]
  - Mania [Recovering/Resolving]
  - Abnormal behaviour [Recovering/Resolving]
  - Bipolar disorder [Unknown]

NARRATIVE: CASE EVENT DATE: 2014
